FAERS Safety Report 9691119 (Version 1)
Quarter: 2013Q4

REPORT INFORMATION
  Report Type: Spontaneous
  Country: US (occurrence: US)
  Receive Date: 20131115
  Receipt Date: 20131115
  Transmission Date: 20140711
  Serious: Yes (Other)
  Sender: FDA-Public Use
  Company Number: US-GLAXOSMITHKLINE-A1025388A

PATIENT
  Sex: Male

DRUGS (1)
  1. VOTRIENT [Suspect]
     Indication: MALIGNANT URINARY TRACT NEOPLASM
     Dosage: 600MG PER DAY
     Route: 065

REACTIONS (7)
  - Renal surgery [Unknown]
  - Hair colour changes [Unknown]
  - Headache [Unknown]
  - Blood pressure increased [Unknown]
  - Decreased appetite [Unknown]
  - Pain [Unknown]
  - Tumour excision [Unknown]
